FAERS Safety Report 19200564 (Version 1)
Quarter: 2021Q2

REPORT INFORMATION
  Report Type: Report from Study
  Country: US (occurrence: US)
  Receive Date: 20210430
  Receipt Date: 20210430
  Transmission Date: 20210717
  Serious: Yes (Death)
  Sender: FDA-Public Use
  Company Number: US-MYLANLABS-2021M1025767

PATIENT

DRUGS (7)
  1. CISPLATIN. [Suspect]
     Active Substance: CISPLATIN
     Indication: MEDULLOBLASTOMA
     Dosage: 3.5 MILLIGRAM/KILOGRAM, CYCLEON DAY 1; CYCLE 1...
     Route: 065
  2. METHOTREXATE. [Suspect]
     Active Substance: METHOTREXATE
     Indication: MEDULLOBLASTOMA
     Dosage: 400 MILLIGRAM/KILOGRAM, CYCLE ON DAY 3; CYCLE 1, 3...
     Route: 065
  3. TEMOZOLOMIDE. [Suspect]
     Active Substance: TEMOZOLOMIDE
     Indication: MEDULLOBLASTOMA
     Dosage: 6.5 MILLIGRAM/KILOGRAM, CYCLEON DAYS 1?5; CYCLE 2...
     Route: 048
  4. ETOPOSIDE. [Suspect]
     Active Substance: ETOPOSIDE
     Indication: MEDULLOBLASTOMA
     Dosage: 1.65 MILLIGRAM/KILOGRAM, CYCLE ON DAYS 1?10; CYCLE 2...
     Route: 048
  5. CYCLOPHOSPHAMIDE. [Suspect]
     Active Substance: CYCLOPHOSPHAMIDE
     Indication: MEDULLOBLASTOMA
     Dosage: 65 MILLIGRAM/KILOGRAM, CYCLE ON DAYS 2 AND 3; CYCLE...
     Route: 065
  6. VINCRISTINE [Suspect]
     Active Substance: VINCRISTINE
     Indication: MEDULLOBLASTOMA
     Dosage: 0.05 MILLIGRAM/KILOGRAM, CYCLEON DAYS 1, 8 AND 15...
     Route: 065
  7. ETOPOSIDE. [Suspect]
     Active Substance: ETOPOSIDE
     Indication: MEDULLOBLASTOMA
     Dosage: 4 MILLIGRAM/KILOGRAM, CYCLEON DAYS 2 AND 3; CYCLE...
     Route: 042

REACTIONS (3)
  - Cardiopulmonary failure [Fatal]
  - Mucosal inflammation [Fatal]
  - Gastrointestinal haemorrhage [Fatal]
